FAERS Safety Report 5697375-2 (Version None)
Quarter: 2008Q2

REPORT INFORMATION
  Report Type: 
  Country: None (occurrence: None)
  Receive Date: 20080408
  Receipt Date: 20080326
  Transmission Date: 20081010
  Serious: Yes (Disabling, Other)
  Sender: FDA-Public Use
  Company Number: US-BAYER-200818331NA

PATIENT
  Sex: Male

DRUGS (5)
  1. MAGNEVIST [Suspect]
  2. OMNISCAN [Suspect]
  3. OPTIMARK [Suspect]
  4. MULTIHANCE [Suspect]
  5. PROHANCE [Suspect]

REACTIONS (11)
  - AMPUTATION [None]
  - ANXIETY [None]
  - EMOTIONAL DISTRESS [None]
  - FIBROSIS [None]
  - GENERAL PHYSICAL HEALTH DETERIORATION [None]
  - INJURY [None]
  - MOBILITY DECREASED [None]
  - NEPHROGENIC SYSTEMIC FIBROSIS [None]
  - PAIN [None]
  - QUALITY OF LIFE DECREASED [None]
  - SCAR [None]
